FAERS Safety Report 16726851 (Version 2)
Quarter: 2020Q1

REPORT INFORMATION
  Report Type: Spontaneous
  Country: US (occurrence: US)
  Receive Date: 20190821
  Receipt Date: 20200331
  Transmission Date: 20200409
  Serious: Yes (Hospitalization, Other)
  Sender: FDA-Public Use
  Company Number: US-AKCEA THERAPEUTICS-2019IS001653

PATIENT

DRUGS (1)
  1. TEGSEDI [Suspect]
     Active Substance: INOTERSEN SODIUM
     Indication: HEREDITARY NEUROPATHIC AMYLOIDOSIS
     Dosage: 284 MG, QW
     Route: 058

REACTIONS (4)
  - Glomerular filtration rate decreased [Not Recovered/Not Resolved]
  - Renal impairment [Not Recovered/Not Resolved]
  - Neurological symptom [Unknown]
  - Blood creatinine increased [Not Recovered/Not Resolved]
